FAERS Safety Report 11445835 (Version 1)
Quarter: 2015Q3

REPORT INFORMATION
  Report Type: Spontaneous
  Country: US (occurrence: None)
  Receive Date: 20150901
  Receipt Date: 20150901
  Transmission Date: 20151125
  Serious: Yes (Hospitalization)
  Sender: FDA-Public Use
  Company Number: None

PATIENT
  Age: 55 Year
  Sex: Female
  Weight: 69.1 kg

DRUGS (4)
  1. PASIREOTIDE 60 MG NOVARTIS [Suspect]
     Active Substance: PASIREOTIDE
     Indication: CONGENITAL CYSTIC KIDNEY DISEASE
     Dosage: 1 INJECTION EVERY 28 DAYS INTRAMUSCULAR
     Route: 030
     Dates: start: 20140326, end: 20150813
  2. ASPIRIN. [Concomitant]
     Active Substance: ASPIRIN
  3. PRILOSEC [Concomitant]
     Active Substance: OMEPRAZOLE MAGNESIUM
  4. LISINOPRIL. [Concomitant]
     Active Substance: LISINOPRIL

REACTIONS (2)
  - Abdominal pain [None]
  - Diarrhoea haemorrhagic [None]

NARRATIVE: CASE EVENT DATE: 20150829
